FAERS Safety Report 4276847-1 (Version None)
Quarter: 2004Q1

REPORT INFORMATION
  Report Type: 
  Country: None (occurrence: None)
  Receive Date: 20040120
  Receipt Date: 20040105
  Transmission Date: 20041129
  Serious: Yes (Hospitalization)
  Sender: FDA-Public Use
  Company Number: 04H-087-0246800-00

PATIENT
  Age: 64 Year
  Sex: Female

DRUGS (11)
  1. SEVOFLURANE [Suspect]
     Indication: ANAESTHESIA
     Dosage: 0.4-0.8%
     Dates: start: 20020729, end: 20020729
  2. PENTAZOCINE [Concomitant]
  3. PROPOFOL [Concomitant]
  4. VECURONIUM BROMIDE [Concomitant]
  5. EPHEDRINE [Concomitant]
  6. MEPIVACAINE HCL [Concomitant]
  7. BUPRENORPHINE [Concomitant]
  8. BUPIVACAINE HCL [Concomitant]
  9. FUROSEMIDE [Concomitant]
  10. METHYLPREDNISOLONE SODIUM SUCCINATE [Concomitant]
  11. NITROUS OXIDE [Concomitant]

REACTIONS (4)
  - ANAESTHETIC COMPLICATION CARDIAC [None]
  - CARDIOMYOPATHY [None]
  - DELAYED RECOVERY FROM ANAESTHESIA [None]
  - HYPONATRAEMIA [None]
